FAERS Safety Report 24670153 (Version 1)
Quarter: 2024Q4

REPORT INFORMATION
  Report Type: Spontaneous
  Country: FR (occurrence: FR)
  Receive Date: 20241127
  Receipt Date: 20241127
  Transmission Date: 20250115
  Serious: Yes (Other)
  Sender: FRESENIUS KABI
  Company Number: FR-BAXTER-2024BAX026937

PATIENT
  Age: 2 Day
  Sex: Male

DRUGS (22)
  1. SODIUM CHLORIDE [Suspect]
     Active Substance: SODIUM CHLORIDE
     Indication: Product used for unknown indication
     Dosage: UNK
     Route: 042
     Dates: start: 20241024, end: 20241024
  2. SODIUM CHLORIDE [Suspect]
     Active Substance: SODIUM CHLORIDE
     Dosage: UNK
     Route: 042
     Dates: start: 20241026, end: 20241026
  3. SODIUM CHLORIDE [Suspect]
     Active Substance: SODIUM CHLORIDE
     Indication: Nutritional supplementation
     Dosage: UNK
     Route: 042
     Dates: end: 20241026
  4. SODIUM CHLORIDE [Suspect]
     Active Substance: SODIUM CHLORIDE
     Dosage: UNK
     Route: 042
     Dates: start: 20241025, end: 20241025
  5. SODIUM CHLORIDE [Suspect]
     Active Substance: SODIUM CHLORIDE
     Dosage: UNK
     Route: 042
     Dates: start: 20241027, end: 20241027
  6. PRIMENE [Suspect]
     Active Substance: ALANINE\ARGININE\ASPARTIC ACID\CYSTEINE\GLUTAMIC ACID\GLYCINE\HISTIDINE\ISOLEUCINE\LEUCINE\LYSINE\ME
     Indication: Product used for unknown indication
     Dosage: UNK?FOA: SOLUTION FOR INFUSION
     Route: 042
     Dates: end: 20241027
  7. PRIMENE [Suspect]
     Active Substance: ALANINE\ARGININE\ASPARTIC ACID\CYSTEINE\GLUTAMIC ACID\GLYCINE\HISTIDINE\ISOLEUCINE\LEUCINE\LYSINE\ME
     Dosage: UNK?FOA: SOLUTION FOR INFUSION
     Route: 042
     Dates: start: 20241026, end: 20241026
  8. PRIMENE [Suspect]
     Active Substance: ALANINE\ARGININE\ASPARTIC ACID\CYSTEINE\GLUTAMIC ACID\GLYCINE\HISTIDINE\ISOLEUCINE\LEUCINE\LYSINE\ME
     Dosage: UNK?FOA: SOLUTION FOR INFUSION
     Route: 042
     Dates: start: 20241025, end: 20241025
  9. WATER FOR INJECTION [Suspect]
     Active Substance: WATER
     Indication: Nutritional supplementation
     Dosage: UNK?FOA: SOLVENT FOR PARENTRAL USE
     Route: 042
     Dates: start: 20241025, end: 20241025
  10. WATER FOR INJECTION [Suspect]
     Active Substance: WATER
     Dosage: UNK?FOA: SOLVENT FOR PARENTERAL USE
     Route: 042
     Dates: start: 20241027, end: 20241027
  11. WATER FOR INJECTION [Suspect]
     Active Substance: WATER
     Dosage: UNK?FOA: SOLVENT FOR PARENTERAL USE
     Route: 042
     Dates: start: 20241026, end: 20241026
  12. AMINO ACIDS\DEXTROSE\ELECTROLYTES NOS\SOYBEAN OIL [Suspect]
     Active Substance: AMINO ACIDS\DEXTROSE\ELECTROLYTES NOS\SOYBEAN OIL
     Indication: Product used for unknown indication
     Dosage: UNK?FOA: EMULSION FOR INFUSION
     Route: 065
     Dates: start: 20241024, end: 20241027
  13. DEXTROSE [Suspect]
     Active Substance: DEXTROSE MONOHYDRATE
     Indication: Nutritional supplementation
     Dosage: UNK
     Route: 065
     Dates: end: 20241026
  14. DEXTROSE [Suspect]
     Active Substance: DEXTROSE MONOHYDRATE
     Dosage: UNK
     Route: 065
     Dates: start: 20241025, end: 20241025
  15. DEXTROSE [Suspect]
     Active Substance: DEXTROSE MONOHYDRATE
     Dosage: UNK
     Route: 065
     Dates: start: 20241027, end: 20241027
  16. CALCIUM GLUCONATE [Suspect]
     Active Substance: CALCIUM GLUCONATE
     Indication: Nutritional supplementation
     Dosage: UNK
     Route: 042
     Dates: start: 20241025, end: 20241025
  17. CALCIUM GLUCONATE [Suspect]
     Active Substance: CALCIUM GLUCONATE
     Dosage: UNK
     Route: 042
     Dates: start: 20241026, end: 20241026
  18. CALCIUM GLUCONATE [Suspect]
     Active Substance: CALCIUM GLUCONATE
     Dosage: UNK
     Route: 042
     Dates: start: 20241027, end: 20241027
  19. KCL [Suspect]
     Active Substance: POTASSIUM CHLORIDE
     Indication: Nutritional supplementation
     Dosage: UNK
     Route: 042
     Dates: end: 20241026
  20. KCL [Suspect]
     Active Substance: POTASSIUM CHLORIDE
     Dosage: UNK
     Route: 042
     Dates: start: 20241027, end: 20241027
  21. KCL [Suspect]
     Active Substance: POTASSIUM CHLORIDE
     Dosage: UNK
     Route: 042
     Dates: start: 20241025, end: 20241025
  22. PHOCYTAN [Concomitant]
     Active Substance: .ALPHA.-GLUCOSE-1-PHOSPHATE DISODIUM TETRAHYDRATE
     Indication: Product used for unknown indication
     Dosage: UNK
     Route: 065

REACTIONS (3)
  - Hypernatraemia [Unknown]
  - Hyponatraemia [Recovered/Resolved]
  - Hyperchloraemia [Unknown]

NARRATIVE: CASE EVENT DATE: 20241025
